FAERS Safety Report 25808626 (Version 2)
Quarter: 2025Q3

REPORT INFORMATION
  Report Type: Spontaneous
  Country: EU (occurrence: EU)
  Receive Date: 20250916
  Receipt Date: 20250918
  Transmission Date: 20251021
  Serious: Yes (Life-Threatening, Hospitalization)
  Sender: BAYER HEALTHCARE PHARMACEUTICALS INC.
  Company Number: None

PATIENT
  Age: 78 Year
  Sex: Male
  Weight: 82 kg

DRUGS (1)
  1. ULTRAVIST [Suspect]
     Active Substance: IOPROMIDE
     Indication: Imaging procedure
     Route: 042
     Dates: start: 20210518, end: 20210518

REACTIONS (4)
  - Cough [Recovering/Resolving]
  - Seizure [Recovering/Resolving]
  - Cardiac arrest [Recovering/Resolving]
  - Heart rate decreased [None]

NARRATIVE: CASE EVENT DATE: 20210518
